FAERS Safety Report 7773821-5 (Version None)
Quarter: 2011Q3

REPORT INFORMATION
  Report Type: 
  Country: None (occurrence: None)
  Receive Date: 20110920
  Receipt Date: 20110908
  Transmission Date: 20111222
  Serious: Yes (Hospitalization)
  Sender: FDA-Public Use
  Company Number: 2011VX002659

PATIENT
  Sex: Female

DRUGS (2)
  1. LEVETIRACETAM [Suspect]
     Indication: MYOCLONIC EPILEPSY
  2. PRIMIDONE [Suspect]
     Indication: MYOCLONIC EPILEPSY

REACTIONS (5)
  - MYOCLONUS [None]
  - AUTOMATISM [None]
  - DRUG WITHDRAWAL CONVULSIONS [None]
  - MATERNAL DRUGS AFFECTING FOETUS [None]
  - EXPOSURE DURING BREAST FEEDING [None]
